FAERS Safety Report 15179372 (Version 2)
Quarter: 2018Q3

REPORT INFORMATION
  Report Type: Report from Study
  Country: GB (occurrence: GB)
  Receive Date: 20180723
  Receipt Date: 20180802
  Transmission Date: 20181010
  Serious: Yes (Hospitalization, Other)
  Sender: FDA-Public Use
  Company Number: GB-BAXTER-2018BAX019876

PATIENT
  Age: 17 Month
  Weight: 11.6 kg

DRUGS (16)
  1. PARACETAMOL [Concomitant]
     Active Substance: ACETAMINOPHEN
     Indication: PYREXIA
     Dosage: ONGOING
     Route: 065
     Dates: start: 20180213
  2. CHLORPHENAMINE [Concomitant]
     Active Substance: CHLORPHENIRAMINE MALEATE
     Indication: PREMEDICATION
     Dosage: ONGOING
     Route: 065
     Dates: start: 20180205
  3. UROKINASE [Concomitant]
     Active Substance: UROKINASE
     Indication: IRRIGATION THERAPY
     Route: 065
     Dates: start: 20180207, end: 20180207
  4. AMBISOME [Concomitant]
     Active Substance: AMPHOTERICIN B
     Indication: PROPHYLAXIS
     Route: 065
     Dates: start: 20180214, end: 201802
  5. FUROSEMIDE. [Concomitant]
     Active Substance: FUROSEMIDE
     Indication: FLUID RETENTION
     Route: 065
     Dates: start: 20180220, end: 201803
  6. BENZYDAMINE HYDROCHLORIDE [Concomitant]
     Active Substance: BENZYDAMINE HYDROCHLORIDE
     Indication: PHARYNGITIS
     Dosage: ONGOING
     Route: 065
     Dates: start: 20180213
  7. CYCLOPHOSPHAMIDE INJECTION 1G [Suspect]
     Active Substance: CYCLOPHOSPHAMIDE
     Indication: ACUTE MYELOID LEUKAEMIA
     Dosage: INTRAVENOUS INFUSION, CONDITIONING THERAPY
     Route: 042
     Dates: start: 20180204, end: 20180207
  8. CALTEN [Concomitant]
     Active Substance: CALCITRIOL\CALCIUM CARBONATE\ZINC
     Indication: DERMATITIS DIAPER
     Route: 065
     Dates: start: 20180216, end: 20180218
  9. MEDI?HONEY [Concomitant]
     Indication: DERMATITIS DIAPER
     Route: 065
     Dates: start: 20180203, end: 20180217
  10. LEVOMEPROMAZINE [Concomitant]
     Active Substance: LEVOMEPROMAZINE
     Indication: NAUSEA
     Route: 065
     Dates: start: 20180209, end: 201802
  11. GEMTUZUMAB OZOGAMICIN [Suspect]
     Active Substance: GEMTUZUMAB OZOGAMICIN
     Indication: ACUTE MYELOID LEUKAEMIA
     Dosage: INTRAVENOUS INFUSION
     Route: 042
     Dates: start: 20171107, end: 20171110
  12. BUSULFAN. [Suspect]
     Active Substance: BUSULFAN
     Indication: ACUTE MYELOID LEUKAEMIA
     Dosage: REGIMEN?1, INTRAVENOUS INFUSION, CONDITIONING THERAPY
     Route: 042
     Dates: start: 20180130, end: 20180204
  13. ITRACONAZOLE. [Concomitant]
     Active Substance: ITRACONAZOLE
     Indication: ANTIFUNGAL PROPHYLAXIS
     Dosage: ONGOING
     Route: 065
     Dates: start: 20180226
  14. TRANEXAMIC ACID. [Concomitant]
     Active Substance: TRANEXAMIC ACID
     Indication: INJURY
     Route: 065
     Dates: start: 20180216, end: 20180216
  15. LEVOMEPROMAZINE [Concomitant]
     Active Substance: LEVOMEPROMAZINE
     Indication: VOMITING
  16. VANCOMYCIN [Concomitant]
     Active Substance: VANCOMYCIN
     Indication: PROPHYLAXIS
     Route: 065
     Dates: start: 20180213, end: 20180216

REACTIONS (1)
  - Venoocclusive disease [Unknown]

NARRATIVE: CASE EVENT DATE: 20180302
